FAERS Safety Report 5322344-1 (Version None)
Quarter: 2007Q2

REPORT INFORMATION
  Report Type: 
  Country: None (occurrence: None)
  Receive Date: 20070511
  Receipt Date: 20070504
  Transmission Date: 20071010
  Serious: Yes (Hospitalization, Other)
  Sender: FDA-Public Use
  Company Number: US-ELI_LILLY_AND_COMPANY-US200705001379

PATIENT
  Age: 82 Year
  Sex: Female

DRUGS (5)
  1. HUMALOG [Suspect]
     Indication: DIABETES MELLITUS
     Dosage: 10 U, OTHER
  2. HUMALOG [Suspect]
     Dosage: 12 U, EACH EVENING
  3. HUMALOG [Suspect]
     Dosage: 10 U, OTHER
  4. HUMALOG [Suspect]
     Dosage: 12 U, EACH EVENING
  5. LANTUS [Concomitant]
     Dosage: UNK, UNKNOWN

REACTIONS (8)
  - BLOOD GLUCOSE DECREASED [None]
  - CEREBROVASCULAR ACCIDENT [None]
  - FALL [None]
  - LOSS OF CONSCIOUSNESS [None]
  - PHARMACEUTICAL PRODUCT COMPLAINT [None]
  - RIB FRACTURE [None]
  - SKIN LACERATION [None]
  - UPPER LIMB FRACTURE [None]
